FAERS Safety Report 8579063 (Version 2)
Quarter: 2012Q4

REPORT INFORMATION
  Report Type: 
  Country: US (occurrence: US)
  Receive Date: 20120524
  Receipt Date: 20120830
  Transmission Date: 20130627
  Serious: Yes (Other)
  Sender: FDA-Public Use
  Company Number: US-PFIZER INC-2012123374

PATIENT
  Age: 69 Year
  Sex: Female
  Weight: 102 kg

DRUGS (2)
  1. ZOLOFT [Suspect]
     Indication: BIPOLAR DISORDER
     Dosage: 200 mg, 1x/day
     Route: 048
     Dates: start: 1996
  2. LAMICTAL [Concomitant]
     Dosage: UNK

REACTIONS (2)
  - Rib fracture [Recovered/Resolved]
  - Muscle strain [Recovered/Resolved]
